FAERS Safety Report 5738805-7 (Version None)
Quarter: 2008Q2

REPORT INFORMATION
  Report Type: 
  Country: None (occurrence: None)
  Receive Date: 20080515
  Receipt Date: 20080313
  Transmission Date: 20081010
  Serious: No
  Sender: FDA-Public Use
  Company Number: A0715257A

PATIENT
  Sex: Female

DRUGS (7)
  1. VERAMYST [Suspect]
     Route: 045
     Dates: start: 20080101
  2. CYTOMEL [Concomitant]
  3. FUROSEMIDE [Concomitant]
  4. HYDROMORPHONE HCL [Concomitant]
  5. HIPREX [Concomitant]
  6. ACTONEL [Concomitant]
  7. METOLAZONE [Concomitant]

REACTIONS (2)
  - BLOOD LEAD INCREASED [None]
  - SCAN MYOCARDIAL PERFUSION ABNORMAL [None]
